FAERS Safety Report 4502361-1 (Version None)
Quarter: 2004Q4

REPORT INFORMATION
  Report Type: 
  Country: None (occurrence: None)
  Receive Date: 20041110
  Receipt Date: 20041028
  Transmission Date: 20050328
  Serious: Yes (Other)
  Sender: FDA-Public Use
  Company Number: 2004086455

PATIENT
  Age: 55 Year
  Sex: Male
  Weight: 85 kg

DRUGS (8)
  1. LIPITOR [Suspect]
     Indication: ILL-DEFINED DISORDER
     Dosage: ORAL
     Route: 048
     Dates: end: 20040624
  2. EFAVIRENZ (EFAVIRENZ) [Suspect]
     Indication: HIV INFECTION
     Dosage: 600 MG (600 MG, 1 IN 1 D), ORAL
     Route: 048
     Dates: start: 20031101
  3. STAVUDINE (STAVUDINE) [Concomitant]
  4. TENOFOVIR DISOPROXIL FUMARATE (TENOFOVIR (DISOPROXIL FUMARATE) [Concomitant]
  5. ATENOLOL [Concomitant]
  6. CLOPIDOGREL (CLOPIDOGREL) [Concomitant]
  7. AMLODIPINE (AMLODIPINE) [Concomitant]
  8. NICORANDIL (NICORANDIL) [Concomitant]

REACTIONS (4)
  - DRUG INTERACTION [None]
  - MUSCLE CRAMP [None]
  - MYALGIA [None]
  - MYOSITIS [None]
